FAERS Safety Report 21258992 (Version 4)
Quarter: 2023Q4

REPORT INFORMATION
  Report Type: Spontaneous
  Country: US (occurrence: None)
  Receive Date: 20220826
  Receipt Date: 20231219
  Transmission Date: 20240110
  Serious: No
  Sender: FDA-Public Use
  Company Number: US-ROCHE-3149618

PATIENT
  Sex: Male

DRUGS (2)
  1. HEMLIBRA [Suspect]
     Active Substance: EMICIZUMAB-KXWH
     Indication: Factor VIII deficiency
     Dosage: DOSE AND UNIT: 60MG/0.4ML,
     Route: 058
  2. KOVALTRY [Concomitant]
     Active Substance: ANTIHEMOPHILIC FACTOR, HUMAN RECOMBINANT
     Indication: Factor VIII deficiency
     Dosage: INFUSE ~ 3000 UNITS (+/-10%) INTRAVEN OUSLY EVERY 24 HOURS AS NEEDED FOR BLEEDING.
     Route: 058

REACTIONS (1)
  - Haemorrhage [Unknown]
